FAERS Safety Report 8380774-8 (Version None)
Quarter: 2012Q2

REPORT INFORMATION
  Report Type: 
  Country: None (occurrence: None)
  Receive Date: 20120523
  Receipt Date: 20120510
  Transmission Date: 20120825
  Serious: Yes (Hospitalization)
  Sender: FDA-Public Use
  Company Number: US-JNJFOC-20120510822

PATIENT
  Sex: Female

DRUGS (6)
  1. IBUPROFEN [Suspect]
     Indication: POSTOPERATIVE CARE
     Route: 048
  2. STEROIDS NOS [Suspect]
     Indication: POSTOPERATIVE CARE
     Route: 048
  3. ASCORBIC ACID [Suspect]
     Indication: POSTOPERATIVE CARE
     Route: 048
  4. ACETAMINOPHEN [Suspect]
     Route: 048
  5. ACETAMINOPHEN [Suspect]
     Indication: POSTOPERATIVE CARE
     Route: 048
     Dates: start: 20120411
  6. NEURONTIN [Suspect]
     Indication: POSTOPERATIVE CARE
     Route: 048

REACTIONS (5)
  - ASTHENIA [None]
  - PALLOR [None]
  - ORTHOSTATIC HYPOTENSION [None]
  - HAEMATOCHEZIA [None]
  - TACHYCARDIA [None]
